FAERS Safety Report 17013707 (Version 1)
Quarter: 2019Q4

REPORT INFORMATION
  Report Type: Report from Study
  Country: CA (occurrence: CA)
  Receive Date: 20191110
  Receipt Date: 20191110
  Transmission Date: 20200122
  Serious: Yes (Other)
  Sender: FDA-Public Use
  Company Number: CA-BRISTOL-MYERS SQUIBB COMPANY-BMS-2019-105560

PATIENT
  Age: 66 Year
  Sex: Male

DRUGS (1)
  1. NIVOLUMAB [Suspect]
     Active Substance: NIVOLUMAB
     Indication: MALIGNANT MELANOMA
     Dosage: 261 MILLIGRAM, Q2WK
     Route: 042
     Dates: start: 20190627

REACTIONS (2)
  - Precancerous skin lesion [Unknown]
  - Erythema [Unknown]

NARRATIVE: CASE EVENT DATE: 20190627
